FAERS Safety Report 16774711 (Version 1)
Quarter: 2019Q3

REPORT INFORMATION
  Report Type: Spontaneous
  Country: CH (occurrence: CH)
  Receive Date: 20190905
  Receipt Date: 20190905
  Transmission Date: 20191005
  Serious: Yes (Other)
  Sender: FDA-Public Use
  Company Number: CH-TEVA-2019-CH-1099203

PATIENT
  Sex: Female

DRUGS (1)
  1. BISOPROLOL MEPHA 5MG [Suspect]
     Active Substance: BISOPROLOL FUMARATE
     Indication: HYPERTENSION
     Dosage: 1 TABLET IN THE MORNING
     Route: 065
     Dates: start: 20190415, end: 20190424

REACTIONS (3)
  - Blood pressure abnormal [Recovered/Resolved]
  - Dyspnoea [Recovered/Resolved]
  - Breast discomfort [Recovered/Resolved]
